FAERS Safety Report 24903630 (Version 2)
Quarter: 2025Q1

REPORT INFORMATION
  Report Type: Spontaneous
  Country: ES (occurrence: ES)
  Receive Date: 20250130
  Receipt Date: 20250131
  Transmission Date: 20250409
  Serious: No
  Sender: ASTELLAS
  Company Number: ES-ASTELLAS-2025-AER-004754

PATIENT
  Age: 63 Year
  Sex: Female

DRUGS (2)
  1. VEOZAH [Suspect]
     Active Substance: FEZOLINETANT
     Indication: Menopausal symptoms
     Dosage: AT THE SAME TIME (MORNING).
     Route: 048
     Dates: start: 20241206, end: 202412
  2. VALSARTAN [Concomitant]
     Active Substance: VALSARTAN
     Indication: Hypertension
     Route: 050

REACTIONS (1)
  - Headache [Recovered/Resolved]

NARRATIVE: CASE EVENT DATE: 20241206
